FAERS Safety Report 5113775-3 (Version None)
Quarter: 2006Q3

REPORT INFORMATION
  Report Type: 
  Country: None (occurrence: None)
  Receive Date: 20060925
  Receipt Date: 20060918
  Transmission Date: 20061208
  Serious: Yes (Hospitalization)
  Sender: FDA-Public Use
  Company Number: US-AVENTIS-200617858US

PATIENT
  Sex: Female

DRUGS (15)
  1. LANTUS [Suspect]
     Indication: DIABETES MELLITUS NON-INSULIN-DEPENDENT
     Route: 058
     Dates: start: 20040101
  2. TYLENOL W/ CODEINE NO. 3 [Concomitant]
     Dosage: DOSE: UNKNOWN
  3. IMDUR [Concomitant]
     Dosage: DOSE: UNKNOWN
  4. COZAAR [Concomitant]
     Dosage: DOSE: UNKNOWN
  5. PLAVIX [Concomitant]
     Dosage: DOSE: UNKNOWN
  6. LASIX [Concomitant]
     Dosage: DOSE: UNKNOWN
  7. ZOCOR [Concomitant]
     Dosage: DOSE: UNKNOWN
  8. DOCUSATE [Concomitant]
     Dosage: DOSE: UNKNOWN
  9. PREVACID [Concomitant]
     Dosage: DOSE: UNKNOWN
  10. AMBIEN [Concomitant]
     Dosage: DOSE: UNKNOWN
  11. ZOLOFT [Concomitant]
     Dosage: DOSE: UNKNOWN
  12. POTASSIUM [Concomitant]
  13. CALCIUM WITH VITAMIN D [Concomitant]
     Dosage: DOSE: UNKNOWN
  14. ASPIRIN [Concomitant]
     Dosage: DOSE: UNKNOWN
  15. BONIVA [Concomitant]
     Dosage: DOSE: UNKNOWN

REACTIONS (2)
  - CARDIAC FAILURE CONGESTIVE [None]
  - CONDITION AGGRAVATED [None]
